FAERS Safety Report 9299290 (Version 1)
Quarter: 2013Q2

REPORT INFORMATION
  Report Type: Spontaneous
  Country: FR (occurrence: FR)
  Receive Date: 20130520
  Receipt Date: 20130520
  Transmission Date: 20140414
  Serious: Yes (Hospitalization)
  Sender: FDA-Public Use
  Company Number: PHHY2013FR049277

PATIENT
  Age: 49 Year
  Sex: Male

DRUGS (8)
  1. AMOXICILLIN+CLAVULANATE SANDOZ [Suspect]
     Indication: TRACHEITIS
     Dosage: 1 DF, TID
     Route: 048
     Dates: start: 20130305, end: 20130312
  2. XARELTO [Suspect]
     Indication: PULMONARY EMBOLISM
     Dosage: 15 MG, BID
     Route: 048
     Dates: start: 20130305, end: 20130315
  3. BIPROFENID [Suspect]
     Indication: TRACHEITIS
     Dosage: 100 MG, QD
     Route: 048
     Dates: start: 20130305, end: 20130312
  4. INEXIUM [Suspect]
     Indication: PRODUCT USED FOR UNKNOWN INDICATION
     Dosage: 20 MG, QD
     Route: 048
     Dates: start: 20130305, end: 20130312
  5. DOLIPRANE [Suspect]
     Indication: PAIN
     Dates: start: 20130305
  6. AMLODIPINE ARROW [Suspect]
     Route: 048
     Dates: start: 20130306
  7. JOSACINE [Concomitant]
     Dates: start: 20130313
  8. LOVENOX [Concomitant]
     Dates: start: 20130315

REACTIONS (3)
  - Pleural effusion [Recovering/Resolving]
  - Chest pain [Recovered/Resolved]
  - Haemothorax [Recovering/Resolving]
